FAERS Safety Report 7287557-0 (Version None)
Quarter: 2011Q1

REPORT INFORMATION
  Report Type: 
  Country: None (occurrence: None)
  Receive Date: 20110211
  Receipt Date: 20110203
  Transmission Date: 20110831
  Serious: Yes (Life-Threatening, Other)
  Sender: FDA-Public Use
  Company Number: US-JNJCH-2009031504

PATIENT
  Age: 7 Year
  Sex: Male
  Weight: 18.6 kg

DRUGS (2)
  1. RINOCORT [Concomitant]
     Indication: NASAL DISORDER
     Dosage: TEXT:1 SPRAY PER NOSTRIL
     Route: 045
  2. CHILDREN'S SUDAFED PE NASAL DECONGESTANT [Suspect]
     Indication: RHINORRHOEA
     Dosage: TEXT:ONE TSP - THREE TIMES TOTAL
     Route: 048
     Dates: start: 20090807, end: 20091204

REACTIONS (1)
  - ANAPHYLACTIC SHOCK [None]
